FAERS Safety Report 7864573-9 (Version None)
Quarter: 2011Q4

REPORT INFORMATION
  Report Type: 
  Country: None (occurrence: None)
  Receive Date: 20111025
  Receipt Date: 20111017
  Transmission Date: 20120403
  Serious: Yes (Other)
  Sender: FDA-Public Use
  Company Number: DSA_47882_2011

PATIENT
  Age: 5 Year
  Sex: Male
  Weight: 13.4 kg

DRUGS (3)
  1. NIFEDIPINE [Concomitant]
  2. ENALAPRIL MALEATE [Suspect]
     Indication: BLOOD PRESSURE MANAGEMENT
     Dosage: 0.5 MG/KG/DAY ORAL
     Route: 048
  3. SODIUM BICARBONATE [Concomitant]

REACTIONS (2)
  - HYPONATRAEMIA [None]
  - MENTAL STATUS CHANGES [None]
